FAERS Safety Report 9558225 (Version 1)
Quarter: 2013Q3

REPORT INFORMATION
  Report Type: Report from Study
  Country: IN (occurrence: IN)
  Receive Date: 20130926
  Receipt Date: 20130926
  Transmission Date: 20140515
  Serious: Yes (Death)
  Sender: FDA-Public Use
  Company Number: PHHO2013IN012488

PATIENT
  Sex: 0

DRUGS (12)
  1. BLINDED ENALAPRIL [Suspect]
     Indication: CARDIAC FAILURE CHRONIC
     Dosage: DOUBLE BLIND
     Dates: start: 20120304
  2. BLINDED LCZ696 [Suspect]
     Indication: CARDIAC FAILURE CHRONIC
     Dosage: DOUBLE BLIND
     Dates: start: 20120304
  3. BLINDED NO TREATMENT RECEIVED [Suspect]
     Indication: CARDIAC FAILURE CHRONIC
     Dosage: DOUBLE BLIND
     Dates: start: 20120304
  4. CLASPRIN [Concomitant]
     Dosage: 150 MG, QD (75+75)
     Route: 048
     Dates: start: 20120213
  5. IMDUR [Concomitant]
     Dosage: 30 MG, QD
     Route: 048
     Dates: start: 20120215
  6. LASILACTONE [Concomitant]
     Indication: CARDIAC FAILURE
     Dosage: 70 MG, QD (50+20)
     Dates: start: 20120213, end: 20120517
  7. RAMIPRO [Concomitant]
     Indication: CARDIAC FAILURE
     Dosage: 5 MG, BID
     Route: 048
     Dates: start: 20120213, end: 20120328
  8. CLONAX [Concomitant]
     Indication: INSOMNIA
     Dosage: 0.5 MG, QD
     Route: 048
     Dates: start: 20120213
  9. CONCOR [Concomitant]
     Indication: CARDIAC FAILURE
     Dosage: 2.5 MG, QD
     Route: 048
     Dates: start: 20120222
  10. TACHYRA [Concomitant]
     Dosage: 100 MG, QD
     Route: 048
     Dates: start: 20120222
  11. ALDACTONE [Concomitant]
     Indication: CARDIAC FAILURE
     Dosage: 25 MG, QD
     Route: 048
     Dates: start: 20120517
  12. ATSTAT [Concomitant]
     Dosage: 10 MG, QD
     Route: 048
     Dates: start: 20130503, end: 20130923

REACTIONS (1)
  - Sudden death [Fatal]
